FAERS Safety Report 15720465 (Version 1)
Quarter: 2018Q4

REPORT INFORMATION
  Report Type: Spontaneous
  Country: US (occurrence: US)
  Receive Date: 20181213
  Receipt Date: 20181213
  Transmission Date: 20190205
  Serious: No
  Sender: FDA-Public Use
  Company Number: US-ACTELION-A-US2018-183027

PATIENT
  Sex: Female

DRUGS (6)
  1. TRAMADOL. [Concomitant]
     Active Substance: TRAMADOL
  2. MORPHINE [Concomitant]
     Active Substance: MORPHINE
  3. NAPROXEN. [Concomitant]
     Active Substance: NAPROXEN
  4. OPSUMIT [Suspect]
     Active Substance: MACITENTAN
     Indication: PULMONARY HYPERTENSION
     Route: 048
  5. UPTRAVI [Suspect]
     Active Substance: SELEXIPAG
     Indication: PULMONARY HYPERTENSION
     Route: 048
  6. LASIX [Concomitant]
     Active Substance: FUROSEMIDE

REACTIONS (6)
  - Pain in extremity [Unknown]
  - Sleep disorder [Unknown]
  - Dyspnoea [Unknown]
  - Pollakiuria [Unknown]
  - Hospice care [Unknown]
  - Feeling hot [Unknown]
